FAERS Safety Report 18932704 (Version 1)
Quarter: 2021Q1

REPORT INFORMATION
  Report Type: Spontaneous
  Country: US (occurrence: US)
  Receive Date: 20210223
  Receipt Date: 20210223
  Transmission Date: 20210420
  Serious: No
  Sender: FDA-Public Use
  Company Number: None

PATIENT
  Age: 49 Year
  Sex: Female

DRUGS (13)
  1. FUROSEMIDE. [Concomitant]
     Active Substance: FUROSEMIDE
  2. EMGALITY [Concomitant]
     Active Substance: GALCANEZUMAB-GNLM
  3. AMLODIPINE [Concomitant]
     Active Substance: AMLODIPINE BESYLATE
  4. WARFARIN [Concomitant]
     Active Substance: WARFARIN
  5. AMITRIPTYLINE [Concomitant]
     Active Substance: AMITRIPTYLINE
  6. LAMOTRIGINE. [Concomitant]
     Active Substance: LAMOTRIGINE
  7. METOPROLOL. [Concomitant]
     Active Substance: METOPROLOL
  8. ATORVASTATIN [Concomitant]
     Active Substance: ATORVASTATIN
  9. LETAIRIS [Suspect]
     Active Substance: AMBRISENTAN
     Indication: PULMONARY HYPERTENSION
     Route: 048
  10. SILDENAFIL. [Concomitant]
     Active Substance: SILDENAFIL
  11. OPSUMIT [Concomitant]
     Active Substance: MACITENTAN
  12. DULERA [Concomitant]
     Active Substance: FORMOTEROL FUMARATE DIHYDRATE\MOMETASONE FUROATE
  13. TRELEGY ELLIPTA [Concomitant]
     Active Substance: FLUTICASONE FUROATE\UMECLIDINIUM BROMIDE\VILANTEROL TRIFENATATE

REACTIONS (4)
  - Drug ineffective [None]
  - Fatigue [None]
  - Dyspnoea [None]
  - Sluggishness [None]

NARRATIVE: CASE EVENT DATE: 20210223
